FAERS Safety Report 4401540-1 (Version None)
Quarter: 2004Q3

REPORT INFORMATION
  Report Type: 
  Country: None (occurrence: None)
  Receive Date: 20040714
  Receipt Date: 20040628
  Transmission Date: 20050211
  Serious: Yes (Disabling)
  Sender: FDA-Public Use
  Company Number: USA040670551

PATIENT
  Age: 42 Year
  Sex: Female

DRUGS (2)
  1. HUMALOG [Suspect]
     Indication: GESTATIONAL DIABETES
     Dates: end: 20040101
  2. HUMALOG [Suspect]
     Indication: DIABETES MELLITUS NON-INSULIN-DEPENDENT
     Dosage: 15 U DAY
     Dates: end: 20040101

REACTIONS (14)
  - ASTHENIA [None]
  - DEPRESSED MOOD [None]
  - DIABETES MELLITUS INADEQUATE CONTROL [None]
  - DRUG EXPOSURE DURING PREGNANCY [None]
  - DYSPNOEA [None]
  - FEELING ABNORMAL [None]
  - FEMALE GENITAL OPERATION [None]
  - HEADACHE [None]
  - MATERNAL DISTRESS DURING LABOUR [None]
  - MEDICATION ERROR [None]
  - NAUSEA [None]
  - PHARMACEUTICAL PRODUCT COMPLAINT [None]
  - PREMATURE BABY [None]
  - SLUGGISHNESS [None]
